FAERS Safety Report 8442538-6 (Version None)
Quarter: 2012Q2

REPORT INFORMATION
  Report Type: 
  Country: None (occurrence: None)
  Receive Date: 20120615
  Receipt Date: 20111215
  Transmission Date: 20120825
  Serious: No
  Sender: FDA-Public Use
  Company Number: US-NOVEN-11US003808

PATIENT
  Sex: Female

DRUGS (5)
  1. DAYTRANA [Suspect]
     Indication: ATTENTION DEFICIT/HYPERACTIVITY DISORDER
     Dosage: 15 MG, QD
     Route: 062
     Dates: start: 20111202
  2. PROZAC [Concomitant]
     Indication: ANXIETY
     Dosage: 50 MG, UNK
     Route: 048
  3. DAYTRANA [Suspect]
     Dosage: 20 MG, UNK
     Dates: start: 20111208
  4. PROZAC [Concomitant]
     Indication: DEPRESSION
  5. DAYTRANA [Suspect]
     Dosage: 15 MG, UNK
     Dates: start: 20111214

REACTIONS (6)
  - VISION BLURRED [None]
  - NERVOUSNESS [None]
  - DISTURBANCE IN ATTENTION [None]
  - CONFUSIONAL STATE [None]
  - INSOMNIA [None]
  - OFF LABEL USE [None]
